FAERS Safety Report 5834900-2 (Version None)
Quarter: 2008Q3

REPORT INFORMATION
  Report Type: 
  Country: None (occurrence: None)
  Receive Date: 20080806
  Receipt Date: 20080728
  Transmission Date: 20090109
  Serious: Yes (Other)
  Sender: FDA-Public Use
  Company Number: US-BAYER-200813063BCC

PATIENT
  Age: 41 Year
  Sex: Male
  Weight: 68 kg

DRUGS (1)
  1. ALEVE (CAPLET) [Suspect]
     Indication: MYALGIA
     Dosage: AS USED: 220 MG  UNIT DOSE: 220 MG
     Route: 048
     Dates: start: 20080727

REACTIONS (6)
  - HYPERSENSITIVITY [None]
  - LIP SWELLING [None]
  - PARAESTHESIA ORAL [None]
  - RASH [None]
  - THROAT TIGHTNESS [None]
  - URTICARIA [None]
